FAERS Safety Report 6686861-4 (Version None)
Quarter: 2010Q2

REPORT INFORMATION
  Report Type: 
  Country: None (occurrence: None)
  Receive Date: 20100416
  Receipt Date: 20100416
  Transmission Date: 20101027
  Serious: Yes (Hospitalization, Other)
  Sender: FDA-Public Use
  Company Number: None

PATIENT
  Sex: Female
  Weight: 85.2762 kg

DRUGS (1)
  1. FLOVENT INHALER GLAXO SMITH KLINE [Suspect]
     Indication: ASTHMA
     Dosage: 220 MCG 12 GM 1 PUFF 2 X DAY OFF AND ON
     Dates: start: 19930101, end: 20090101

REACTIONS (2)
  - CATARACT [None]
  - CONDITION AGGRAVATED [None]
